FAERS Safety Report 7210370-7 (Version None)
Quarter: 2011Q1

REPORT INFORMATION
  Report Type: 
  Country: None (occurrence: None)
  Receive Date: 20110105
  Receipt Date: 20101222
  Transmission Date: 20110831
  Serious: Yes (Other)
  Sender: FDA-Public Use
  Company Number: PHFR2010GB05581

PATIENT
  Sex: Male

DRUGS (13)
  1. CLOZARIL [Suspect]
     Indication: SCHIZOPHRENIA
     Dosage: 150 MG, BID
     Route: 048
     Dates: start: 20101108
  2. BISACODYL [Concomitant]
     Dosage: 10 MG, BID
  3. OMEPRAZOLE [Concomitant]
     Dosage: 40 MG, QD
     Route: 048
  4. LORAZEPAM [Concomitant]
     Dosage: UNK
     Route: 048
  5. MIRTAZAPINE [Concomitant]
     Dosage: 30 MG, QD
  6. DIAZEPAM [Interacting]
     Dosage: 5 MG, BID
     Dates: start: 20101124
  7. THIAMINE [Concomitant]
     Dosage: 10 MG, BID
  8. HALOPERIDOL [Concomitant]
     Dosage: UNK
     Route: 048
  9. DECAPEPTYL [Concomitant]
     Dosage: 4 ML, QMO
     Route: 048
  10. CLEXANE [Concomitant]
     Dosage: UNK
     Route: 048
  11. PROCYCLIDINE HYDROCHLORIDE 2MG TAB [Concomitant]
     Dosage: UNK
     Route: 048
  12. ONDANSETRON [Concomitant]
     Dosage: UNK
     Route: 048
  13. FERROUS SULFATE [Concomitant]
     Dosage: 200 MG, QD

REACTIONS (5)
  - HALLUCINATION [None]
  - TACHYCARDIA [None]
  - AGITATION [None]
  - BLOOD PRESSURE DECREASED [None]
  - SOMNOLENCE [None]
